FAERS Safety Report 9095578 (Version 1)
Quarter: 2013Q1

REPORT INFORMATION
  Report Type: Spontaneous
  Country: DK (occurrence: None)
  Receive Date: 20130123
  Receipt Date: 20130123
  Transmission Date: 20140127
  Serious: Yes (Disabling)
  Sender: FDA-Public Use
  Company Number: 2013MA000538

PATIENT
  Age: 21 Year
  Sex: Female

DRUGS (1)
  1. CITALOPRAM HYDROBROMIDE TABLETS, 40 MG (PUREPAC) (CITALOPRAM HYDROBROMIDE) [Suspect]
     Route: 048
     Dates: start: 20121219, end: 20121221

REACTIONS (3)
  - Musculoskeletal stiffness [None]
  - Movement disorder [None]
  - Parkinson^s disease [None]
